FAERS Safety Report 6301180-3 (Version None)
Quarter: 2009Q3

REPORT INFORMATION
  Report Type: 
  Country: None (occurrence: None)
  Receive Date: 20090807
  Receipt Date: 20090616
  Transmission Date: 20100115
  Serious: Yes (Death, Other)
  Sender: FDA-Public Use
  Company Number: PHHY2009ES24675

PATIENT
  Age: 47 Year
  Sex: Male

DRUGS (5)
  1. IMATINIB MESYLATE [Suspect]
     Indication: ACUTE LYMPHOCYTIC LEUKAEMIA
  2. CYCLOPHOSPHAMIDE [Concomitant]
  3. ADRIAMYCIN RDF [Concomitant]
  4. VINCRISTINE [Concomitant]
  5. PREDNISONE [Concomitant]

REACTIONS (23)
  - ANTITHROMBIN III DECREASED [None]
  - BLISTER [None]
  - CARDIOMEGALY [None]
  - CYANOSIS [None]
  - DIARRHOEA [None]
  - DILATATION VENTRICULAR [None]
  - DISSEMINATED INTRAVASCULAR COAGULATION [None]
  - FIBRIN D DIMER INCREASED [None]
  - GANGRENE [None]
  - GENERAL PHYSICAL HEALTH DETERIORATION [None]
  - MULTI-ORGAN FAILURE [None]
  - PALLOR [None]
  - PANCYTOPENIA [None]
  - PERIPHERAL COLDNESS [None]
  - PERITONEAL EFFUSION [None]
  - PLEURAL EFFUSION [None]
  - PROTEIN C DECREASED [None]
  - PROTHROMBIN LEVEL DECREASED [None]
  - PROTHROMBIN TIME PROLONGED [None]
  - PYREXIA [None]
  - SEPSIS [None]
  - THROMBOCYTOPENIA [None]
  - VENTRICULAR FAILURE [None]
